FAERS Safety Report 12221671 (Version 1)
Quarter: 2016Q1

REPORT INFORMATION
  Report Type: Spontaneous
  Country: US (occurrence: US)
  Receive Date: 20160330
  Receipt Date: 20160330
  Transmission Date: 20160526
  Serious: Yes (Congenital Anomaly, Other)
  Sender: FDA-Public Use
  Company Number: PHEH2016US007465

PATIENT
  Sex: Male

DRUGS (1)
  1. ZOFRAN [Suspect]
     Active Substance: ONDANSETRON HYDROCHLORIDE
     Indication: FOETAL EXPOSURE DURING PREGNANCY
     Route: 064

REACTIONS (11)
  - Dysmorphism [Unknown]
  - Developmental delay [Unknown]
  - Hypertonia [Unknown]
  - Cleft palate [Unknown]
  - Congenital anomaly [Unknown]
  - Congenital hearing disorder [Unknown]
  - Foetal exposure during pregnancy [Unknown]
  - Deformity [Unknown]
  - Cleft lip [Unknown]
  - Microcephaly [Unknown]
  - Injury [Unknown]
